FAERS Safety Report 23921900 (Version 2)
Quarter: 2024Q2

REPORT INFORMATION
  Report Type: Report from Study
  Country: US (occurrence: US)
  Receive Date: 20240530
  Receipt Date: 20240612
  Transmission Date: 20240716
  Serious: Yes (Other)
  Sender: FDA-Public Use
  Company Number: US-ABBVIE-5743626

PATIENT
  Sex: Male
  Weight: 77 kg

DRUGS (2)
  1. RINVOQ [Suspect]
     Active Substance: UPADACITINIB
     Indication: Colitis ulcerative
     Route: 048
     Dates: start: 20240104
  2. RINVOQ [Suspect]
     Active Substance: UPADACITINIB
     Indication: Colitis ulcerative
     Route: 048
     Dates: start: 20231204

REACTIONS (5)
  - Colon cancer [Not Recovered/Not Resolved]
  - Abdominal pain upper [Recovering/Resolving]
  - Hypoaesthesia [Recovered/Resolved]
  - Cytology abnormal [Unknown]
  - Colon dysplasia [Unknown]

NARRATIVE: CASE EVENT DATE: 20240101
